FAERS Safety Report 11493925 (Version 1)
Quarter: 2015Q3

REPORT INFORMATION
  Report Type: Spontaneous
  Country: US (occurrence: US)
  Receive Date: 20150911
  Receipt Date: 20150911
  Transmission Date: 20151125
  Serious: No
  Sender: FDA-Public Use
  Company Number: US-ROCHE-1010017

PATIENT
  Sex: Male

DRUGS (3)
  1. PEGASYS [Suspect]
     Active Substance: PEGINTERFERON ALFA-2A
     Indication: CHRONIC HEPATITIS C
     Route: 065
     Dates: start: 20111014
  2. RIBASPHERE [Suspect]
     Active Substance: RIBAVIRIN
     Indication: CHRONIC HEPATITIS C
     Route: 065
     Dates: start: 20111014
  3. TELAPREVIR [Suspect]
     Active Substance: TELAPREVIR
     Indication: CHRONIC HEPATITIS C
     Dosage: UNKNOWN
     Route: 065
     Dates: start: 20111014

REACTIONS (9)
  - Dizziness [Unknown]
  - Groin pain [Unknown]
  - Rash [Unknown]
  - Dry skin [Unknown]
  - Abdominal pain [Unknown]
  - Headache [Unknown]
  - Angiopathy [Unknown]
  - Oral mucosal eruption [Unknown]
  - Back pain [Unknown]
